FAERS Safety Report 4542162-1 (Version None)
Quarter: 2004Q4

REPORT INFORMATION
  Report Type: 
  Country: None (occurrence: None)
  Receive Date: 20041227
  Receipt Date: 20041208
  Transmission Date: 20050328
  Serious: Yes (Hospitalization)
  Sender: FDA-Public Use
  Company Number: SP00374

PATIENT
  Age: 80 Year
  Sex: Female

DRUGS (10)
  1. COLAZAL [Suspect]
     Indication: COLITIS ULCERATIVE
     Dosage: 2.25G/TID, ORAL
     Route: 048
     Dates: start: 20040908, end: 20041101
  2. ALLOPURINOL [Suspect]
     Indication: COLITIS ULCERATIVE
     Dosage: 200 MG/QD
  3. POTASSIUM [Suspect]
  4. ASACOL [Concomitant]
  5. FOLIC ACID [Concomitant]
  6. ATENOLOL [Concomitant]
  7. ZESTRIL [Concomitant]
  8. NORVASC [Concomitant]
  9. HYDROCHLOROTHIAZIDE [Concomitant]
  10. ASPIRIN [Concomitant]

REACTIONS (4)
  - BLOOD PRESSURE INCREASED [None]
  - IDIOPATHIC THROMBOCYTOPENIC PURPURA [None]
  - PETECHIAE [None]
  - PLATELET COUNT DECREASED [None]
